FAERS Safety Report 9840484 (Version 1)
Quarter: 2014Q1

REPORT INFORMATION
  Report Type: Spontaneous
  Country: US (occurrence: None)
  Receive Date: 20140121
  Receipt Date: 20140121
  Transmission Date: 20141002
  Serious: Yes (Hospitalization)
  Sender: FDA-Public Use
  Company Number: None

PATIENT
  Age: 26 Year
  Sex: Female
  Weight: 47.2 kg

DRUGS (4)
  1. ABRAXANE [Suspect]
     Indication: PANCREATIC CARCINOMA METASTATIC
     Dosage: 125MG/M2?Q 14 DAYS?IV
     Route: 042
     Dates: start: 20121219, end: 20130129
  2. OXALIPLATIN [Suspect]
     Dosage: 85MG/2?Q14DAYS?IV
     Route: 042
     Dates: start: 20121219, end: 20130129
  3. LEUCO [Suspect]
     Dosage: Q14DAYS?400MG/M2?IV
     Route: 042
     Dates: start: 20121219, end: 20130129
  4. 5FU [Suspect]
     Dosage: 1200MG/M2?X 2DAYS CIV 48HRS
     Dates: start: 20121219, end: 20130129

REACTIONS (2)
  - Infection [None]
  - Device related infection [None]
